FAERS Safety Report 9106085 (Version 1)
Quarter: 2013Q1

REPORT INFORMATION
  Report Type: Spontaneous
  Country: CA (occurrence: CA)
  Receive Date: 20130221
  Receipt Date: 20130221
  Transmission Date: 20140127
  Serious: Yes (Hospitalization, Other)
  Sender: FDA-Public Use
  Company Number: CA-TEVA-387332USA

PATIENT
  Age: 47 Year
  Sex: Female

DRUGS (1)
  1. SALBUTAMOL [Suspect]
     Indication: PULMONARY FUNCTION TEST
     Dosage: 4 PUFFS, ONCE, PO
     Route: 055
     Dates: start: 20121220, end: 20121220

REACTIONS (4)
  - Convulsion [Recovered/Resolved]
  - Hypoaesthesia [Unknown]
  - Paraesthesia [Unknown]
  - Tremor [Unknown]
